FAERS Safety Report 20520009 (Version 1)
Quarter: 2022Q1

REPORT INFORMATION
  Report Type: Spontaneous
  Country: US (occurrence: US)
  Receive Date: 20220225
  Receipt Date: 20220225
  Transmission Date: 20220423
  Serious: Yes (Other)
  Sender: FDA-Public Use
  Company Number: US-PFIZER INC-202200269491

PATIENT
  Age: 61 Year
  Sex: Male

DRUGS (1)
  1. INLYTA [Suspect]
     Active Substance: AXITINIB
     Dosage: 5 MG, 2X/DAY (TWICE A DAY)
     Route: 048
     Dates: start: 20220122

REACTIONS (4)
  - Gait disturbance [Unknown]
  - Asthenia [Unknown]
  - Fatigue [Unknown]
  - Muscular weakness [Unknown]

NARRATIVE: CASE EVENT DATE: 20220101
